FAERS Safety Report 5376404-X (Version None)
Quarter: 2007Q3

REPORT INFORMATION
  Report Type: 
  Country: None (occurrence: None)
  Receive Date: 20070702
  Receipt Date: 20070620
  Transmission Date: 20080115
  Serious: Yes (Life-Threatening, Other)
  Sender: FDA-Public Use
  Company Number: JP-PFIZER INC-2007051219

PATIENT
  Age: 80 Year
  Sex: Female
  Weight: 82 kg

DRUGS (5)
  1. NORVASC [Suspect]
     Indication: HYPERTENSION
     Route: 048
  2. PROPOFOL [Interacting]
     Indication: GENERAL ANAESTHESIA
     Dosage: DAILY DOSE:80MG
     Route: 042
  3. VECURONIUM BROMIDE [Interacting]
     Indication: GENERAL ANAESTHESIA
     Dosage: DAILY DOSE:8MG
     Route: 042
  4. DIOVAN [Concomitant]
     Route: 048
  5. SEVOFLURANE [Concomitant]
     Indication: GENERAL ANAESTHESIA
     Dosage: TEXT:2-3%
     Route: 055

REACTIONS (3)
  - ATRIOVENTRICULAR BLOCK SECOND DEGREE [None]
  - CARDIAC ARREST [None]
  - DRUG INTERACTION [None]
